FAERS Safety Report 6438877-0 (Version None)
Quarter: 2009Q4

REPORT INFORMATION
  Report Type: 
  Country: None (occurrence: None)
  Receive Date: 20091113
  Receipt Date: 20091029
  Transmission Date: 20100525
  Serious: Yes (Other)
  Sender: FDA-Public Use
  Company Number: PHHY2009FR47635

PATIENT
  Age: 80 Year
  Sex: Male

DRUGS (3)
  1. GLEEVEC [Suspect]
     Indication: CHRONIC MYELOID LEUKAEMIA
     Route: 048
  2. COUMADIN [Concomitant]
     Dosage: UNK
     Dates: end: 20090901
  3. ARIXTRA [Concomitant]
     Dosage: UNK
     Dates: start: 20090901, end: 20090922

REACTIONS (7)
  - BED REST [None]
  - DRUG INTERACTION [None]
  - DYSPNOEA EXERTIONAL [None]
  - HAEMATOMA [None]
  - PHLEBITIS [None]
  - PULMONARY EMBOLISM [None]
  - SCIATICA [None]
